FAERS Safety Report 5664528-9 (Version None)
Quarter: 2008Q1

REPORT INFORMATION
  Report Type: 
  Country: None (occurrence: None)
  Receive Date: 20080311
  Receipt Date: 20080311
  Transmission Date: 20080703
  Serious: Yes (Other)
  Sender: FDA-Public Use
  Company Number: None

PATIENT
  Weight: 89.7215 kg

DRUGS (1)
  1. VARENICLINE 1MG PFIZER [Suspect]
     Indication: SMOKING CESSATION THERAPY
     Dosage: 1MG TWICE DAILY PO
     Route: 048
     Dates: start: 20080205, end: 20080305

REACTIONS (6)
  - ABNORMAL DREAMS [None]
  - DEPRESSION [None]
  - IRRITABILITY [None]
  - LETHARGY [None]
  - PALPITATIONS [None]
  - SUICIDAL IDEATION [None]
